FAERS Safety Report 4487244-8 (Version None)
Quarter: 2004Q4

REPORT INFORMATION
  Report Type: 
  Country: None (occurrence: None)
  Receive Date: 20041022
  Receipt Date: 20041007
  Transmission Date: 20050328
  Serious: Yes (Disabling)
  Sender: FDA-Public Use
  Company Number: SP00355

PATIENT
  Age: 35 Year
  Sex: Female
  Weight: 60 kg

DRUGS (2)
  1. COLAZAL [Suspect]
     Indication: COLITIS
     Dosage: 750MG/6XDAY, ORAL
     Route: 048
     Dates: start: 20020101
  2. PREDNISOLONE [Concomitant]

REACTIONS (3)
  - OEDEMA MOUTH [None]
  - OEDEMA PERIPHERAL [None]
  - TENDERNESS [None]
